FAERS Safety Report 26153559 (Version 4)
Quarter: 2025Q4

REPORT INFORMATION
  Report Type: Spontaneous
  Country: US (occurrence: US)
  Receive Date: 20251214
  Receipt Date: 20251224
  Transmission Date: 20260117
  Serious: Yes (Other)
  Sender: IPSEN BIOPHARMACEUTICALS, INC.
  Company Number: US-IPSEN Group, Research and Development-2025-30649

PATIENT
  Sex: Female

DRUGS (2)
  1. BYLVAY [Suspect]
     Active Substance: ODEVIXIBAT
     Indication: Hepatic cirrhosis
  2. BYLVAY [Suspect]
     Active Substance: ODEVIXIBAT
     Indication: Off label use

REACTIONS (3)
  - Hepatic cirrhosis [Unknown]
  - Liver transplant [Unknown]
  - Off label use [Unknown]
